FAERS Safety Report 5809766-7 (Version None)
Quarter: 2008Q3

REPORT INFORMATION
  Report Type: 
  Country: None (occurrence: None)
  Receive Date: 20080709
  Receipt Date: 20080625
  Transmission Date: 20090109
  Serious: Yes (Other)
  Sender: FDA-Public Use
  Company Number: GB-1166605

PATIENT
  Age: 76 Year
  Sex: Female

DRUGS (9)
  1. MAXITROL [Suspect]
     Indication: CATARACT OPERATION
     Dosage: QID OPHTHALMIC
     Route: 047
     Dates: start: 20080428
  2. WAFARIN (WARFARIN) [Concomitant]
  3. ALLOPURINOL [Concomitant]
  4. AMLODIPINE [Concomitant]
  5. CO-DYDRAMOL (PARAMOL-118) [Concomitant]
  6. DIGOXIN [Concomitant]
  7. LISINOPRIL [Concomitant]
  8. RANITIDINE [Concomitant]
  9. SIMVASTATIN [Concomitant]

REACTIONS (2)
  - DRUG INTERACTION [None]
  - INTERNATIONAL NORMALISED RATIO INCREASED [None]
